FAERS Safety Report 9997961 (Version 4)
Quarter: 2018Q1

REPORT INFORMATION
  Report Type: Spontaneous
  Country: DE (occurrence: DE)
  Receive Date: 20140311
  Receipt Date: 20180316
  Transmission Date: 20180509
  Serious: Yes (Hospitalization, Other)
  Sender: FDA-Public Use
  Company Number: DE-BRISTOL-MYERS SQUIBB COMPANY-20387221

PATIENT
  Age: 50 Year
  Sex: Male

DRUGS (4)
  1. CETUXIMAB. [Suspect]
     Active Substance: CETUXIMAB
     Indication: LARYNGEAL SQUAMOUS CELL CARCINOMA
     Dosage: 850 MG, SINGLE
     Route: 042
     Dates: start: 20100909
  2. CETUXIMAB. [Suspect]
     Active Substance: CETUXIMAB
     Dosage: 530 MG, WEEKLY (1/W)
     Route: 042
     Dates: end: 201105
  3. CISPLATIN SOLUTION [Suspect]
     Active Substance: CISPLATIN
     Indication: LARYNGEAL SQUAMOUS CELL CARCINOMA
     Dosage: 75 MG/M2, UNKNOWN
     Route: 042
     Dates: start: 201009
  4. PEMETREXED. [Suspect]
     Active Substance: PEMETREXED
     Indication: LARYNGEAL SQUAMOUS CELL CARCINOMA
     Dosage: 1060 MG, WEEKLY (1/W)
     Route: 065
     Dates: start: 201009, end: 201105

REACTIONS (4)
  - Febrile neutropenia [Unknown]
  - Hypomagnesaemia [Recovering/Resolving]
  - Cardio-respiratory arrest [Recovered/Resolved]
  - Ventricular fibrillation [Recovered/Resolved]

NARRATIVE: CASE EVENT DATE: 20110311
